FAERS Safety Report 5235699-3 (Version None)
Quarter: 2007Q1

REPORT INFORMATION
  Report Type: 
  Country: None (occurrence: None)
  Receive Date: 20061208
  Receipt Date: 20060712
  Transmission Date: 20070707
  Serious: Yes (Other)
  Sender: FDA-Public Use
  Company Number: 2006UW14379

PATIENT
  Age: 69 Year
  Sex: Female
  Weight: 70.306 kg

DRUGS (1)
  1. CRESTOR [Suspect]
     Indication: HYPERCHOLESTEROLAEMIA
     Dosage: 10 MG QD PO
     Route: 048
     Dates: start: 20060601

REACTIONS (5)
  - HOT FLUSH [None]
  - MUSCLE SPASMS [None]
  - MYALGIA [None]
  - NIGHT SWEATS [None]
  - STOMACH DISCOMFORT [None]
